FAERS Safety Report 6438744-2 (Version None)
Quarter: 2009Q4

REPORT INFORMATION
  Report Type: 
  Country: None (occurrence: None)
  Receive Date: 20091113
  Receipt Date: 20091103
  Transmission Date: 20100525
  Serious: Yes (Other)
  Sender: FDA-Public Use
  Company Number: US-JNJFOC-20091101457

PATIENT
  Age: 4 Year
  Sex: Male

DRUGS (2)
  1. TYLENOL (CAPLET) [Suspect]
     Route: 050
  2. TYLENOL (CAPLET) [Suspect]
     Indication: DRUG USE FOR UNKNOWN INDICATION
     Dosage: DOSE UNKNOWN, REPORTED AS ONCE AND 1 TIME A DAY
     Route: 050

REACTIONS (3)
  - HYPERSENSITIVITY [None]
  - TRANSMISSION OF AN INFECTIOUS AGENT VIA A MEDICINAL PRODUCT [None]
  - VOMITING [None]
